FAERS Safety Report 20553154 (Version 1)
Quarter: 2022Q1

REPORT INFORMATION
  Report Type: Spontaneous
  Country: US (occurrence: None)
  Receive Date: 20220304
  Receipt Date: 20220304
  Transmission Date: 20220423
  Serious: No
  Sender: FDA-Public Use
  Company Number: None

PATIENT
  Age: 42 Year
  Sex: Male

DRUGS (1)
  1. ALOGLIPTIN [Suspect]
     Active Substance: ALOGLIPTIN
     Indication: Diabetes mellitus
     Dosage: 12.5 MG EVERY DAY PO?
     Route: 048
     Dates: start: 20190213, end: 20211210

REACTIONS (3)
  - Eczema [None]
  - Actinic keratosis [None]
  - Pemphigoid [None]

NARRATIVE: CASE EVENT DATE: 20211213
